FAERS Safety Report 9601624 (Version 1)
Quarter: 2013Q4

REPORT INFORMATION
  Report Type: Spontaneous
  Country: US (occurrence: None)
  Receive Date: 20131004
  Receipt Date: 20131004
  Transmission Date: 20140711
  Serious: Yes (Death, Life-Threatening, Hospitalization)
  Sender: FDA-Public Use
  Company Number: None

PATIENT
  Age: 75 Year
  Sex: Female
  Weight: 57 kg

DRUGS (11)
  1. RIVAROXABAN [Suspect]
     Indication: ATRIAL FIBRILLATION
     Route: 048
     Dates: start: 20120724, end: 20131001
  2. ATORVASTATIN [Concomitant]
  3. CALCIUM CARBONATE/ VITAMIN D [Concomitant]
  4. CELECOXIB [Concomitant]
  5. DILTIAZEM [Concomitant]
  6. ERGOCALCIFEROL [Concomitant]
  7. FOLIC ACID [Concomitant]
  8. FUROSEMIDE [Concomitant]
  9. LEVOTHYROXINE [Concomitant]
  10. METOPROLOL XL [Concomitant]
  11. POTASSIUMCHLORIDE [Concomitant]

REACTIONS (1)
  - Haemorrhagic stroke [None]
